FAERS Safety Report 8893526 (Version 1)
Quarter: 2012Q4

REPORT INFORMATION
  Report Type: 
  Country: US (occurrence: US)
  Receive Date: 20121108
  Receipt Date: 20121108
  Transmission Date: 20130627
  Serious: No
  Sender: FDA-Public Use
  Company Number: US-PFIZER INC-2012279017

PATIENT
  Age: 86 Year
  Sex: Male
  Weight: 77.1 kg

DRUGS (5)
  1. LYRICA [Suspect]
     Indication: NEUROPATHY PERIPHERAL
     Dosage: 150 mg, 2x/day
  2. METFORMIN [Concomitant]
     Indication: PRE-DIABETIC
     Dosage: 500 mg, daily
  3. HYDROCHLOROTHIAZIDE [Concomitant]
     Indication: BLOOD PRESSURE HIGH
     Dosage: 12.5 mg, daily
  4. LORAZEPAM [Concomitant]
     Indication: SLEEP PROBLEM
     Dosage: 1 mg, daily
  5. OMEPRAZOLE [Concomitant]
     Indication: DYSPEPSIA
     Dosage: 40 mg, daily

REACTIONS (1)
  - Drug ineffective [Unknown]
